FAERS Safety Report 10975684 (Version 2)
Quarter: 2015Q3

REPORT INFORMATION
  Report Type: Spontaneous
  Country: IT (occurrence: IT)
  Receive Date: 20150401
  Receipt Date: 20150811
  Transmission Date: 20151125
  Serious: Yes (Hospitalization, Other)
  Sender: FDA-Public Use
  Company Number: IT-PFIZER INC-2015109793

PATIENT
  Age: 52 Year
  Sex: Female

DRUGS (3)
  1. LYRICA [Suspect]
     Active Substance: PREGABALIN
     Dosage: 525 MG, TOTAL  (7 CAPSULES 75MG)
     Route: 048
     Dates: start: 20141215, end: 20141215
  2. FLUOXETINE HYDROCHLORIDE. [Concomitant]
     Active Substance: FLUOXETINE HYDROCHLORIDE
     Indication: DEPRESSION
  3. HALDOL [Suspect]
     Active Substance: HALOPERIDOL
     Dosage: 2 BOTTLES 30ML
     Route: 048
     Dates: start: 20141215, end: 20141215

REACTIONS (6)
  - Pyrexia [Unknown]
  - Sedation [Recovering/Resolving]
  - Hypokalaemia [Unknown]
  - Sopor [Recovering/Resolving]
  - Suicide attempt [Recovering/Resolving]
  - Drug abuse [Recovering/Resolving]

NARRATIVE: CASE EVENT DATE: 20141215
